FAERS Safety Report 8065170-5 (Version None)
Quarter: 2012Q1

REPORT INFORMATION
  Report Type: 
  Country: None (occurrence: None)
  Receive Date: 20120124
  Receipt Date: 20120116
  Transmission Date: 20120608
  Serious: Yes (Hospitalization)
  Sender: FDA-Public Use
  Company Number: US-BAYER-2011-075361

PATIENT
  Sex: Female
  Weight: 83 kg

DRUGS (6)
  1. LEXAPRO [Concomitant]
     Indication: DEPRESSION
     Dosage: UNK
     Route: 048
     Dates: start: 20060101, end: 20100101
  2. MOTRIN [Concomitant]
     Dosage: UNK
     Route: 048
     Dates: start: 20010101, end: 20110101
  3. ACETYLSALICYLIC ACID SRT [Concomitant]
     Dosage: UNK
     Route: 048
     Dates: start: 20010101, end: 20110101
  4. NAPROXEN (ALEVE) [Concomitant]
     Dosage: UNK
     Route: 048
     Dates: start: 20010101, end: 20110101
  5. ALBUTEROL [Concomitant]
     Indication: ASTHMA
     Dosage: UNK
     Route: 055
     Dates: start: 20010101, end: 20110101
  6. YAZ [Suspect]
     Indication: CONTRACEPTION
     Dosage: UNK
     Dates: start: 20060101, end: 20080101

REACTIONS (4)
  - GALLBLADDER INJURY [None]
  - INJURY [None]
  - MENTAL DISORDER [None]
  - PAIN [None]
